FAERS Safety Report 6698233-7 (Version None)
Quarter: 2010Q2

REPORT INFORMATION
  Report Type: 
  Country: None (occurrence: None)
  Receive Date: 20100427
  Receipt Date: 20100419
  Transmission Date: 20101027
  Serious: Yes (Hospitalization)
  Sender: FDA-Public Use
  Company Number: US-SANOFI-AVENTIS-2010SA023428

PATIENT
  Age: 56 Year
  Sex: Male

DRUGS (13)
  1. PLAVIX [Suspect]
     Indication: CEREBROVASCULAR ACCIDENT
     Route: 065
     Dates: start: 20060326, end: 20090920
  2. PLAVIX [Suspect]
     Route: 065
     Dates: start: 20090924
  3. ASPIRIN [Suspect]
     Indication: CEREBROVASCULAR ACCIDENT PROPHYLAXIS
     Route: 065
  4. RITONAVIR [Suspect]
     Indication: ANTIRETROVIRAL THERAPY
     Route: 048
     Dates: start: 20070418
  5. BLINDED THERAPY [Suspect]
     Route: 048
     Dates: start: 20080806
  6. BLINDED THERAPY [Suspect]
     Route: 048
     Dates: start: 20070418
  7. VIREAD [Concomitant]
     Indication: HIV INFECTION
     Dates: start: 20070418
  8. EPZICOM [Concomitant]
     Indication: HIV INFECTION
     Dates: start: 20070418
  9. PROTEASE INHIBITORS [Concomitant]
     Indication: HIV INFECTION
     Dates: start: 20070418
  10. BACTRIM [Concomitant]
     Route: 065
     Dates: start: 20050530
  11. PRAVASTATIN [Concomitant]
     Indication: CEREBROVASCULAR ACCIDENT PROPHYLAXIS
     Route: 065
     Dates: start: 20060210
  12. GABAPENTIN [Concomitant]
     Indication: NEUROPATHY PERIPHERAL
     Route: 065
     Dates: start: 20060601
  13. TAMSULOSIN HYDROCHLORIDE [Concomitant]
     Indication: BENIGN PROSTATIC HYPERPLASIA
     Route: 065
     Dates: start: 20061126

REACTIONS (7)
  - ABDOMINAL PAIN LOWER [None]
  - DIZZINESS [None]
  - FAECES DISCOLOURED [None]
  - GASTRODUODENITIS [None]
  - OESOPHAGEAL ULCER [None]
  - POLYP COLORECTAL [None]
  - UPPER GASTROINTESTINAL HAEMORRHAGE [None]
